FAERS Safety Report 8967747 (Version 1)
Quarter: 2012Q4

REPORT INFORMATION
  Report Type: Spontaneous
  Country: US (occurrence: None)
  Receive Date: 20121213
  Receipt Date: 20121213
  Transmission Date: 20130627
  Serious: Yes (Other)
  Sender: FDA-Public Use
  Company Number: None

PATIENT
  Age: 65 Year
  Sex: Female
  Weight: 77.11 kg

DRUGS (1)
  1. HUMIRA 40MG PFS/ABBOTT LABS [Suspect]
     Indication: RHEUMATOID ARTHRITIS
     Dosage: Subcutaneous 057 injectable  every other week
     Route: 058
     Dates: start: 201209

REACTIONS (1)
  - Muscle spasms [None]
